FAERS Safety Report 8342701-9 (Version None)
Quarter: 2012Q2

REPORT INFORMATION
  Report Type: 
  Country: None (occurrence: None)
  Receive Date: 20120502
  Receipt Date: 20120426
  Transmission Date: 20120825
  Serious: Yes (Death, Hospitalization)
  Sender: FDA-Public Use
  Company Number: 2011SP059946

PATIENT
  Age: 48 Year
  Sex: Female

DRUGS (9)
  1. MORPHINE SULFATE [Concomitant]
  2. NEORECORMON [Concomitant]
  3. AMOXICILLIN AND CLAVULANATE POTASSIUM [Concomitant]
  4. VICTRELIS [Suspect]
     Indication: HEPATITIS C VIRUS TEST POSITIVE
     Dosage: 800 MG; TID; PO
     Route: 048
     Dates: start: 20110920, end: 20111208
  5. ALLOPURINOL [Concomitant]
  6. COPEGUS [Suspect]
     Indication: HEPATITIS C VIRUS TEST POSITIVE
     Dosage: 1200 MG; QD; PO
     Route: 048
     Dates: start: 20101001, end: 20111208
  7. FERROUS SULFATE TAB [Concomitant]
  8. ACETAMINOPHEN [Concomitant]
  9. PEGASYS [Suspect]
     Indication: HEPATITIS C VIRUS TEST POSITIVE
     Dosage: 135 MCG; QW; SC
     Route: 058
     Dates: start: 20101001, end: 20111208

REACTIONS (23)
  - DUST INHALATION PNEUMOPATHY [None]
  - SUBARACHNOID HAEMORRHAGE [None]
  - BRAIN OEDEMA [None]
  - CONFUSIONAL STATE [None]
  - TOXICITY TO VARIOUS AGENTS [None]
  - NEUTROPENIA [None]
  - HEART RATE DECREASED [None]
  - THROMBOCYTOPENIA [None]
  - REFUSAL OF TREATMENT BY PATIENT [None]
  - ENCEPHALOPATHY [None]
  - EPISTAXIS [None]
  - ECCHYMOSIS [None]
  - HEART RATE INCREASED [None]
  - RESPIRATORY DISTRESS [None]
  - CEREBRAL HAEMATOMA [None]
  - COMA [None]
  - MYELODYSPLASTIC SYNDROME [None]
  - ANAEMIA [None]
  - PURPURA [None]
  - HEPATITIS C RNA FLUCTUATION [None]
  - PETECHIAE [None]
  - CIRCULATORY COLLAPSE [None]
  - CEREBROVASCULAR ACCIDENT [None]
